FAERS Safety Report 16383337 (Version 3)
Quarter: 2019Q3

REPORT INFORMATION
  Report Type: Spontaneous
  Country: JP (occurrence: JP)
  Receive Date: 20190603
  Receipt Date: 20190830
  Transmission Date: 20191004
  Serious: Yes (Other)
  Sender: FDA-Public Use
  Company Number: JP-PFIZER INC-2019230855

PATIENT
  Age: 88 Year
  Sex: Female
  Weight: 35.1 kg

DRUGS (9)
  1. ETIZOLAM [Concomitant]
     Active Substance: ETIZOLAM
     Dosage: 1 DF, 2X/DAY
  2. ALFACALCIDOL [Concomitant]
     Active Substance: ALFACALCIDOL
     Dosage: 1 DF, 1X/DAY
  3. MAGMITT [Concomitant]
     Active Substance: MAGNESIUM OXIDE
     Dosage: 1 DF, 2X/DAY
  4. ZOLPIDEM [Concomitant]
     Active Substance: ZOLPIDEM TARTRATE
     Dosage: 1 DF, 1X/DAY
  5. ZYVOX [Suspect]
     Active Substance: LINEZOLID
     Indication: INFECTIVE SPONDYLITIS
     Dosage: 600 MG, 2X/DAY
     Route: 048
     Dates: start: 20190404, end: 20190509
  6. METOCLOPRAMIDE. [Concomitant]
     Active Substance: METOCLOPRAMIDE
     Dosage: 1 DF, 1X/DAY
  7. MICAMLO [Concomitant]
     Active Substance: AMLODIPINE BESYLATE\TELMISARTAN
     Dosage: 1 DF, 1X/DAY
  8. FAMOTIDINE. [Concomitant]
     Active Substance: FAMOTIDINE
     Dosage: 1 DF, 2X/DAY
  9. DOMPERIDONE [Concomitant]
     Active Substance: DOMPERIDONE
     Dosage: 1 DF, 3X/DAY

REACTIONS (4)
  - Sepsis [Unknown]
  - Platelet count decreased [Recovered/Resolved]
  - Intentional product use issue [Unknown]
  - Urinary tract infection [Unknown]

NARRATIVE: CASE EVENT DATE: 20190404
